FAERS Safety Report 7749366-5 (Version None)
Quarter: 2011Q3

REPORT INFORMATION
  Report Type: 
  Country: None (occurrence: None)
  Receive Date: 20110914
  Receipt Date: 20110908
  Transmission Date: 20111222
  Serious: Yes (Other)
  Sender: FDA-Public Use
  Company Number: US-ABBOTT-11P-163-0852098-00

PATIENT
  Sex: Male

DRUGS (1)
  1. HUMIRA [Suspect]
     Indication: PSORIASIS
     Dates: start: 20110110

REACTIONS (5)
  - MUSCULOSKELETAL STIFFNESS [None]
  - ARTHRITIS [None]
  - HEPATIC CIRRHOSIS [None]
  - LEUKOCYTOSIS [None]
  - ARTHRALGIA [None]
